FAERS Safety Report 7532099-8 (Version None)
Quarter: 2011Q2

REPORT INFORMATION
  Report Type: 
  Country: None (occurrence: None)
  Receive Date: 20110608
  Receipt Date: 20110603
  Transmission Date: 20111010
  Serious: Yes (Hospitalization, Other)
  Sender: FDA-Public Use
  Company Number: US-PFIZER INC-2011121487

PATIENT
  Sex: Male
  Weight: 72.562 kg

DRUGS (3)
  1. EFFEXOR XR [Suspect]
     Indication: PANIC ATTACK
  2. EFFEXOR XR [Suspect]
     Indication: ANXIETY
     Dosage: UNK
     Route: 048
     Dates: start: 20060101
  3. EFFEXOR XR [Suspect]
     Indication: DEPRESSION

REACTIONS (4)
  - ANXIETY [None]
  - PANIC ATTACK [None]
  - SUICIDAL IDEATION [None]
  - SUICIDE ATTEMPT [None]
